FAERS Safety Report 5324499-1 (Version None)
Quarter: 2007Q2

REPORT INFORMATION
  Report Type: 
  Country: None (occurrence: None)
  Receive Date: 20070508
  Receipt Date: 20070423
  Transmission Date: 20071010
  Serious: Yes (Hospitalization, Other)
  Sender: FDA-Public Use
  Company Number: 012524

PATIENT
  Age: 41 Year
  Sex: Male

DRUGS (1)
  1. ANTABUSE [Suspect]
     Dosage: 500 MG, QD

REACTIONS (26)
  - AKINESIA [None]
  - ALANINE AMINOTRANSFERASE INCREASED [None]
  - AMNESIA [None]
  - ANAEMIA [None]
  - AREFLEXIA [None]
  - ASPARTATE AMINOTRANSFERASE INCREASED [None]
  - ASTHENIA [None]
  - BLEPHAROSPASM [None]
  - CEREBELLAR ATAXIA [None]
  - COGWHEEL RIGIDITY [None]
  - CONFUSIONAL STATE [None]
  - COORDINATION ABNORMAL [None]
  - CSF PROTEIN INCREASED [None]
  - DISORIENTATION [None]
  - DRUG TOXICITY [None]
  - GAMMA-GLUTAMYLTRANSFERASE INCREASED [None]
  - GASTRITIS EROSIVE [None]
  - MALNUTRITION [None]
  - MASKED FACIES [None]
  - MEMORY IMPAIRMENT [None]
  - OESOPHAGITIS [None]
  - OPHTHALMOPLEGIA [None]
  - PARKINSONISM [None]
  - POLYNEUROPATHY [None]
  - VISUAL ACUITY REDUCED [None]
  - WERNICKE'S ENCEPHALOPATHY [None]
